FAERS Safety Report 18821928 (Version 1)
Quarter: 2021Q1

REPORT INFORMATION
  Report Type: Spontaneous
  Country: US (occurrence: US)
  Receive Date: 20210202
  Receipt Date: 20210202
  Transmission Date: 20210419
  Serious: Yes (Other)
  Sender: FDA-Public Use
  Company Number: US-HQ SPECIALTY-US-2021INT000012

PATIENT
  Age: 8 Month
  Sex: Female

DRUGS (7)
  1. DEXMEDETOMIDINE HYDROCHLORIDE. [Suspect]
     Active Substance: DEXMEDETOMIDINE HYDROCHLORIDE
     Indication: SEDATION
     Dosage: 1 UG/KG,1 MIN
     Route: 065
  2. SUGAMMADEX [Suspect]
     Active Substance: SUGAMMADEX
     Dosage: (4 MG/KG) (32 MG)
     Route: 065
  3. ROCURONIUM [Suspect]
     Active Substance: ROCURONIUM BROMIDE
     Indication: NEUROMUSCULAR BLOCKADE
     Dosage: 1.9 MG/KG, (15 MG)
     Route: 065
  4. SUGAMMADEX [Suspect]
     Active Substance: SUGAMMADEX
     Indication: NEUROMUSCULAR BLOCKADE REVERSAL
     Dosage: (4 MG/KG) (32 MG)
     Route: 065
  5. CEFAZOLIN [Suspect]
     Active Substance: CEFAZOLIN
     Indication: STENT MALFUNCTION
     Dosage: UNK
     Route: 065
  6. ROCURONIUM [Suspect]
     Active Substance: ROCURONIUM BROMIDE
     Dosage: (TOTAL ROCURONIUM DOSE WAS 20 MG (2.48 MG/KG) (5 MG)
     Route: 065
  7. HEPARIN [Concomitant]
     Active Substance: HEPARIN SODIUM
     Indication: STENT MALFUNCTION
     Dosage: UNK
     Route: 065

REACTIONS (5)
  - Drug interaction [Unknown]
  - Product administered to patient of inappropriate age [Unknown]
  - Incorrect drug administration rate [Unknown]
  - Recurrence of neuromuscular blockade [Recovered/Resolved]
  - Respiratory failure [Recovered/Resolved]
